FAERS Safety Report 5853227-6 (Version None)
Quarter: 2008Q3

REPORT INFORMATION
  Report Type: 
  Country: None (occurrence: None)
  Receive Date: 20080820
  Receipt Date: 20080811
  Transmission Date: 20090109
  Serious: Yes (Other)
  Sender: FDA-Public Use
  Company Number: CHPA2008US13470

PATIENT
  Sex: Female

DRUGS (1)
  1. GAS-X UNKNOWN (NCH) (UNKNOWN) UNKNOWN [Suspect]
     Indication: FLATULENCE
     Dosage: ORAL
     Route: 048

REACTIONS (1)
  - NEPHRECTOMY [None]
